FAERS Safety Report 7793368-X (Version None)
Quarter: 2011Q4

REPORT INFORMATION
  Report Type: 
  Country: None (occurrence: None)
  Receive Date: 20111003
  Receipt Date: 20110922
  Transmission Date: 20120403
  Serious: Yes (Life-Threatening, Hospitalization, Other)
  Sender: FDA-Public Use
  Company Number: DE-TEVA-302009GER

PATIENT
  Age: 43 Year
  Sex: Male
  Weight: 60 kg

DRUGS (7)
  1. ASS, 100 MG, TABL, NN [Concomitant]
     Dosage: 100 MILLIGRAM;
     Route: 048
     Dates: start: 20060101
  2. NOVORAPID, AMP, NOVO NORDISK [Concomitant]
     Indication: TYPE 1 DIABETES MELLITUS
     Dosage: 16 IU (INTERNATIONAL UNIT);
     Route: 058
     Dates: start: 19880101
  3. PAN OPHTAL, AUGENSALBE, DR. WINZER [Concomitant]
     Dosage: 1 DOSAGE FORMS;
     Route: 047
     Dates: start: 20110203
  4. FUROSEMIDE [Suspect]
     Dosage: 250 MILLIGRAM;
     Route: 048
     Dates: start: 20090101
  5. CORNEREGEL, AUGENGEL, DR. MANN [Concomitant]
     Dosage: 3 DOSAGE FORMS;
     Route: 047
     Dates: start: 20110203
  6. PANTOZOL, 20 MG, TABL (MR), NYCOMED [Concomitant]
     Dosage: 20 MILLIGRAM;
     Route: 048
     Dates: start: 20090101
  7. LEVEMIR, AMP, NOVO NORDISK [Concomitant]
     Indication: TYPE 1 DIABETES MELLITUS
     Dosage: 22 IU (INTERNATIONAL UNIT);
     Route: 058
     Dates: start: 19880101

REACTIONS (1)
  - RENAL FAILURE ACUTE [None]
